FAERS Safety Report 8571573-2 (Version None)
Quarter: 2012Q3

REPORT INFORMATION
  Report Type: 
  Country: None (occurrence: None)
  Receive Date: 20120806
  Receipt Date: 20120801
  Transmission Date: 20120928
  Serious: Yes (Other)
  Sender: FDA-Public Use
  Company Number: PHHY2010CA07391

PATIENT
  Sex: Male

DRUGS (1)
  1. SANDOSTATIN LAR [Suspect]
     Indication: ACROMEGALY
     Dosage: 20 MG, ONCE IN MONTH
     Route: 030
     Dates: start: 20040105

REACTIONS (9)
  - MALAISE [None]
  - ANEURYSM [None]
  - SIALOADENITIS [None]
  - TOOTHACHE [None]
  - WEIGHT DECREASED [None]
  - NASOPHARYNGITIS [None]
  - SUBCUTANEOUS ABSCESS [None]
  - DIABETES MELLITUS [None]
  - AORTIC ANEURYSM [None]
